FAERS Safety Report 14784229 (Version 3)
Quarter: 2019Q3

REPORT INFORMATION
  Report Type: Report from Study
  Country: FR (occurrence: FR)
  Receive Date: 20180420
  Receipt Date: 20190910
  Transmission Date: 20191004
  Serious: Yes (Death, Life-Threatening, Hospitalization, Other)
  Sender: FDA-Public Use
  Company Number: FR-IPSEN BIOPHARMACEUTICALS, INC.-2018-05586

PATIENT
  Age: 47 Year
  Sex: Female
  Weight: 45 kg

DRUGS (31)
  1. XELODA [Suspect]
     Active Substance: CAPECITABINE
     Indication: PANCREATIC NEUROENDOCRINE TUMOUR METASTATIC
     Dosage: 750 MG/M2, 1X/DAY (FROM DAY 1 TO DAY 14)
     Dates: start: 20140513, end: 20140620
  2. AFINITOR [Suspect]
     Active Substance: EVEROLIMUS
     Indication: PANCREATIC NEUROENDOCRINE TUMOUR METASTATIC
     Dosage: 10 MG, 1X/DAY?CUMULATIVE DOSE 600 MG
     Dates: start: 20150804, end: 20151019
  3. KETOPROFEN. [Concomitant]
     Active Substance: KETOPROFEN
     Indication: INFLAMMATION
  4. INNOHEP [Concomitant]
     Active Substance: TINZAPARIN SODIUM
     Indication: PORTAL VEIN THROMBOSIS
     Dosage: 0.4 ML, QD
     Route: 058
     Dates: start: 20151014
  5. LAROXYL [Concomitant]
     Active Substance: AMITRIPTYLINE HYDROCHLORIDE
     Indication: DEPRESSION
     Dosage: 25 DRP, QD IN EVENING
     Route: 048
     Dates: start: 20150902
  6. BI-PROFENID [Concomitant]
     Active Substance: KETOPROFEN
     Indication: NEURALGIA
     Route: 048
     Dates: start: 2015
  7. OROCAL D3 [Concomitant]
     Active Substance: CALCIUM CARBONATE\CHOLECALCIFEROL
     Indication: MINERAL SUPPLEMENTATION
     Route: 065
     Dates: start: 20150722
  8. KETOPROFEN. [Concomitant]
     Active Substance: KETOPROFEN
     Indication: PROPHYLAXIS
  9. ACTISKENAN [Concomitant]
     Active Substance: MORPHINE SULFATE
     Indication: BACK PAIN
     Route: 048
     Dates: start: 2015
  10. TEMODAL [Suspect]
     Active Substance: TEMOZOLOMIDE
     Dosage: 210 MG/M2, 1X/DAY (FROM DAY 10 TO DAY 14)
     Dates: start: 20140715, end: 20150722
  11. KETOPROFEN. [Concomitant]
     Active Substance: KETOPROFEN
     Indication: BACK PAIN
     Dosage: 100 MG, 2X/DAY, MORNING AND EVENING
     Route: 048
  12. INNOHEP [Concomitant]
     Active Substance: TINZAPARIN SODIUM
     Indication: THROMBOSIS
  13. OROCAL D3 [Concomitant]
     Active Substance: CALCIUM CARBONATE\CHOLECALCIFEROL
     Indication: CALCIUM DEFICIENCY
  14. PARACETAMOL [Concomitant]
     Active Substance: ACETAMINOPHEN
     Indication: BACK PAIN
     Route: 048
     Dates: start: 2015
  15. NEULASTA [Concomitant]
     Active Substance: PEGFILGRASTIM
     Indication: PROPHYLAXIS
  16. OXYNORM [Concomitant]
     Active Substance: OXYCODONE HYDROCHLORIDE
     Indication: PAIN
     Dosage: AT 5 MG UP TO 6 DF ONCE DAILY IF NEEDED
     Route: 048
     Dates: start: 20151014
  17. MOVICOL [Concomitant]
     Active Substance: POLYETHYLENE GLYCOL 3350\POTASSIUM CHLORIDE\SODIUM BICARBONATE\SODIUM CHLORIDE
     Indication: CONSTIPATION
  18. SOMATULINE LP [Suspect]
     Active Substance: LANREOTIDE ACETATE
     Dosage: 120 MG, CYCLIC (EVERY 28 DAYS)?CUMULATIVE DOSE: 2293 MG
     Route: 058
     Dates: start: 20140414
  19. XELODA [Suspect]
     Active Substance: CAPECITABINE
     Dosage: 800 MG/M2, 1X/DAY (FROM DAY 1 TO DAY 14)
     Dates: start: 20140715, end: 20150722
  20. BI-PROFENID [Concomitant]
     Active Substance: KETOPROFEN
     Indication: BACK PAIN
  21. COLECALCIFEROL [Concomitant]
     Active Substance: CHOLECALCIFEROL
     Indication: CALCIUM DEFICIENCY
     Dates: start: 20150722
  22. DENOSUMAB [Concomitant]
     Active Substance: DENOSUMAB
     Indication: PANCREATIC NEUROENDOCRINE TUMOUR METASTATIC
     Dosage: 120 MG, CYCLIC (EVERY 4 WEEKS)
     Dates: start: 201405
  23. SOMATULINE LP [Suspect]
     Active Substance: LANREOTIDE ACETATE
     Indication: PANCREATIC NEUROENDOCRINE TUMOUR METASTATIC
     Route: 058
     Dates: start: 2014
  24. TEMODAL [Suspect]
     Active Substance: TEMOZOLOMIDE
     Indication: PANCREATIC NEUROENDOCRINE TUMOUR METASTATIC
     Dosage: CUMULATIVE DOSE: 7800 MG/M2
     Dates: start: 20140513, end: 20140620
  25. XGEVA [Suspect]
     Active Substance: DENOSUMAB
     Indication: PANCREATIC NEUROENDOCRINE TUMOUR METASTATIC
     Dates: start: 201405, end: 20160114
  26. SUTENT [Suspect]
     Active Substance: SUNITINIB MALATE
     Indication: PANCREATIC NEUROENDOCRINE TUMOUR METASTATIC
     Dosage: 37.5 MG, 1X/DAY?CUMULATIVE DOSE: 2287 MG
     Dates: start: 20151105, end: 20160114
  27. CALCIUM [Concomitant]
     Active Substance: CALCIUM
     Indication: MINERAL SUPPLEMENTATION
  28. MOVICOL [Concomitant]
     Active Substance: POLYETHYLENE GLYCOL 3350\POTASSIUM CHLORIDE\SODIUM BICARBONATE\SODIUM CHLORIDE
     Indication: PROPHYLAXIS
     Dosage: 2 TO 4 BAGS, ONCE DAILY
     Route: 048
     Dates: start: 20150722
  29. LAROXYL [Concomitant]
     Active Substance: AMITRIPTYLINE HYDROCHLORIDE
     Indication: NEURALGIA
  30. OXYCONTIN [Concomitant]
     Active Substance: OXYCODONE HYDROCHLORIDE
     Indication: PAIN
     Dosage: 30 MG, 2X/DAY
     Route: 048
     Dates: start: 20151014
  31. MACROGOL 3350 [Concomitant]
     Active Substance: POLYETHYLENE GLYCOL 3350
     Indication: CONSTIPATION
     Dosage: 2 TO 4 BAGS, ONCE DAILY

REACTIONS (16)
  - Haematochezia [Unknown]
  - Asthenia [Recovered/Resolved]
  - Vomiting [Recovered/Resolved]
  - Nausea [Recovered/Resolved]
  - Constipation [Recovered/Resolved]
  - Abdominal distension [Unknown]
  - Tachycardia [Recovered/Resolved]
  - Oedema peripheral [Not Recovered/Not Resolved]
  - Rash [Recovered/Resolved]
  - Abdominal pain [Unknown]
  - General physical health deterioration [Fatal]
  - Diarrhoea [Recovered/Resolved]
  - Weight increased [Unknown]
  - Abdominal discomfort [Unknown]
  - Mucosal inflammation [Recovered/Resolved]
  - Abnormal faeces [Unknown]

NARRATIVE: CASE EVENT DATE: 201508
